FAERS Safety Report 6704458-4 (Version None)
Quarter: 2010Q2

REPORT INFORMATION
  Report Type: 
  Country: None (occurrence: None)
  Receive Date: 20100430
  Receipt Date: 20100421
  Transmission Date: 20101027
  Serious: Yes (Other)
  Sender: FDA-Public Use
  Company Number: GXKR2010JP04498

PATIENT
  Age: 40 Year
  Sex: Male

DRUGS (1)
  1. ACETYLSALICYLIC ACID SRT [Suspect]
     Dosage: 333 MG
     Route: 065

REACTIONS (6)
  - ANAPHYLACTIC REACTION [None]
  - DYSPNOEA [None]
  - FOOD INTERACTION [None]
  - HYPOTENSION [None]
  - UPPER AIRWAY OBSTRUCTION [None]
  - URTICARIA [None]
